FAERS Safety Report 10058681 (Version 1)
Quarter: 2014Q2

REPORT INFORMATION
  Report Type: Spontaneous
  Country: CO (occurrence: CO)
  Receive Date: 20140404
  Receipt Date: 20140404
  Transmission Date: 20141212
  Serious: Yes (Other)
  Sender: FDA-Public Use
  Company Number: CO-JNJFOC-20140319277

PATIENT
  Age: 58 Year
  Sex: 0
  Weight: 72 kg

DRUGS (1)
  1. SIMPONI [Suspect]
     Indication: PSORIASIS
     Route: 058
     Dates: start: 20131030

REACTIONS (6)
  - Nervousness [Unknown]
  - Persecutory delusion [Unknown]
  - Anxiety [Unknown]
  - Increased appetite [Unknown]
  - Vomiting [Recovering/Resolving]
  - Headache [Unknown]
